FAERS Safety Report 8691247 (Version 3)
Quarter: 2012Q4

REPORT INFORMATION
  Report Type: 
  Country: DE (occurrence: DE)
  Receive Date: 20120730
  Receipt Date: 20120920
  Transmission Date: 20130627
  Serious: Yes (Hospitalization, Other)
  Sender: FDA-Public Use
  Company Number: PHHY2012DE064600

PATIENT
  Age: 67 None
  Sex: Male
  Weight: 66.4 kg

DRUGS (11)
  1. EXJADE [Suspect]
     Indication: IRON OVERLOAD
     Dosage: 1375 mg, per day
     Route: 048
     Dates: start: 20120204, end: 20120523
  2. DECORTIN-H [Concomitant]
     Indication: IMMUNOSUPPRESSION
     Dosage: 20 mg,Daily
     Route: 048
  3. DECORTIN-H [Concomitant]
     Dosage: 10 mg, Daily
     Route: 048
  4. DECORTIN-H [Concomitant]
     Dosage: 5 mg,Daily
     Route: 048
  5. NOXAFIL [Concomitant]
     Indication: IMMUNOSUPPRESSION
     Dosage: 600 mg,Daliy
     Route: 048
  6. ACICLOVIR [Concomitant]
     Indication: IMMUNOSUPPRESSION
     Dosage: 1600 mg, Daily
     Route: 048
  7. COTRIMOXAZOL [Concomitant]
     Indication: IMMUNOSUPPRESSION
     Dosage: 960 mg, On monday, Wednesday,friday
     Route: 048
  8. IDEOS [Concomitant]
  9. BISOPROLOL [Concomitant]
     Dosage: 2.5 mg, UNK
  10. TAMSULOSIN [Concomitant]
     Dosage: 0.4 mg, UNK
  11. PANTOZOL [Concomitant]
     Dosage: 40 mg, UNK

REACTIONS (11)
  - Personality change [Recovering/Resolving]
  - Memory impairment [Recovering/Resolving]
  - Listless [Recovering/Resolving]
  - Fatigue [Recovering/Resolving]
  - Tremor [Recovering/Resolving]
  - Gait disturbance [Recovering/Resolving]
  - Cerebral toxoplasmosis [Unknown]
  - Nervous system disorder [Unknown]
  - Central nervous system lesion [Unknown]
  - Aggression [None]
  - Cerebral ischaemia [None]
